FAERS Safety Report 8364443-6 (Version None)
Quarter: 2012Q2

REPORT INFORMATION
  Report Type: 
  Country: None (occurrence: None)
  Receive Date: 20120516
  Receipt Date: 20120508
  Transmission Date: 20120825
  Serious: Yes (Hospitalization)
  Sender: FDA-Public Use
  Company Number: JP-VERTEX PHARMACEUTICALS INC.-AE-2012-006841

PATIENT
  Age: 67 Year
  Sex: Female

DRUGS (3)
  1. RIBAVIRIN [Concomitant]
     Route: 048
     Dates: start: 20120319, end: 20120416
  2. TELAVIC (TELAPREVIR) [Suspect]
     Indication: HEPATITIS C
     Route: 048
     Dates: start: 20120319, end: 20120423
  3. PEGINTERFERON ALFA-2B [Concomitant]
     Indication: HEPATITIS C
     Route: 051
     Dates: start: 20120319

REACTIONS (2)
  - RENAL IMPAIRMENT [None]
  - MALAISE [None]
